FAERS Safety Report 5347920-1 (Version None)
Quarter: 2007Q2

REPORT INFORMATION
  Report Type: 
  Country: None (occurrence: None)
  Receive Date: 20070606
  Receipt Date: 20070601
  Transmission Date: 20071010
  Serious: Yes (Hospitalization)
  Sender: FDA-Public Use
  Company Number: A0653812A

PATIENT
  Sex: Female

DRUGS (3)
  1. AVANDIA [Suspect]
     Dosage: 4MG PER DAY
     Route: 048
     Dates: end: 20070531
  2. LANTUS [Concomitant]
  3. DIOVAN [Concomitant]

REACTIONS (4)
  - CHEST PAIN [None]
  - PALPITATIONS [None]
  - VISUAL ACUITY REDUCED [None]
  - WEIGHT INCREASED [None]
